FAERS Safety Report 21915447 (Version 1)
Quarter: 2023Q1

REPORT INFORMATION
  Report Type: Spontaneous
  Country: US (occurrence: None)
  Receive Date: 20230125
  Receipt Date: 20230125
  Transmission Date: 20230418
  Serious: Yes (Hospitalization)
  Sender: FDA-Public Use
  Company Number: None

PATIENT
  Sex: Male

DRUGS (1)
  1. TEMOZOLOMIDE [Suspect]
     Active Substance: TEMOZOLOMIDE
     Indication: Brain neoplasm malignant
     Dosage: FREQUENCY : WEEKLY;?
     Route: 048

REACTIONS (7)
  - Vomiting [None]
  - Dehydration [None]
  - Feeding disorder [None]
  - Decreased appetite [None]
  - Gastritis [None]
  - Candida infection [None]
  - Diabetes insipidus [None]
